FAERS Safety Report 25266955 (Version 1)
Quarter: 2025Q2

REPORT INFORMATION
  Report Type: Spontaneous
  Country: US (occurrence: US)
  Receive Date: 20250505
  Receipt Date: 20250505
  Transmission Date: 20250716
  Serious: No
  Sender: ROCHE
  Company Number: US-ROCHE-10000269412

PATIENT
  Sex: Female

DRUGS (2)
  1. XOLAIR [Suspect]
     Active Substance: OMALIZUMAB
     Indication: Nasal polyps
     Dosage: STRENGTH : 75MG/0.5 ML
     Route: 058
     Dates: start: 202308
  2. XOLAIR [Suspect]
     Active Substance: OMALIZUMAB
     Dosage: STRENGTH : 150 MG/ML
     Route: 058
     Dates: start: 202308

REACTIONS (5)
  - Headache [Unknown]
  - Dizziness [Unknown]
  - Rash erythematous [Unknown]
  - Pruritus [Unknown]
  - Hypersensitivity [Unknown]
